FAERS Safety Report 6615954-2 (Version None)
Quarter: 2010Q1

REPORT INFORMATION
  Report Type: 
  Country: None (occurrence: None)
  Receive Date: 20100305
  Receipt Date: 20100301
  Transmission Date: 20100710
  Serious: Yes (Hospitalization)
  Sender: FDA-Public Use
  Company Number: A0847347A

PATIENT
  Age: 68 Year
  Sex: Female

DRUGS (9)
  1. PAROXETINE HYDROCHLORIDE [Suspect]
     Indication: DEPRESSION
     Dosage: 40MG PER DAY
     Route: 048
  2. ZOLOFT [Concomitant]
     Route: 065
  3. BUSPAR [Concomitant]
     Route: 065
  4. ASPIRIN [Concomitant]
  5. DIOVAN HCT [Concomitant]
  6. GLIPIZIDE [Concomitant]
  7. AVANDIA [Concomitant]
  8. NEURONTIN [Concomitant]
  9. TRAMADOL HCL [Concomitant]

REACTIONS (4)
  - CONFUSIONAL STATE [None]
  - HEADACHE [None]
  - IMPAIRED DRIVING ABILITY [None]
  - INCONTINENCE [None]
